FAERS Safety Report 12733146 (Version 1)
Quarter: 2016Q3

REPORT INFORMATION
  Report Type: Spontaneous
  Country: FR (occurrence: FR)
  Receive Date: 20160912
  Receipt Date: 20160912
  Transmission Date: 20161109
  Serious: Yes (Other)
  Sender: FDA-Public Use
  Company Number: FR-SA-2016SA164612

PATIENT
  Sex: Female

DRUGS (1)
  1. LEMTRADA [Suspect]
     Active Substance: ALEMTUZUMAB
     Route: 065

REACTIONS (5)
  - Malignant melanoma [Unknown]
  - Pyrexia [Unknown]
  - Pruritus [Unknown]
  - Infusion related reaction [Unknown]
  - Vertigo [Unknown]
